FAERS Safety Report 4494280-4 (Version None)
Quarter: 2004Q4

REPORT INFORMATION
  Report Type: 
  Country: None (occurrence: None)
  Receive Date: 20041102
  Receipt Date: 20041014
  Transmission Date: 20050328
  Serious: Yes (Hospitalization)
  Sender: FDA-Public Use
  Company Number: US_0410107003

PATIENT
  Sex: Male
  Weight: 3 kg

DRUGS (2)
  1. SARAFEM-PMDD (PREMENSTRUAL DYSPHORIC DISORDER) [Suspect]
     Dates: start: 20030901, end: 20040712
  2. PRENATAL VITAMINS [Concomitant]

REACTIONS (4)
  - CAESAREAN SECTION [None]
  - DRUG EXPOSURE DURING PREGNANCY [None]
  - GASTROOESOPHAGEAL REFLUX DISEASE [None]
  - NEONATAL DISORDER [None]
